FAERS Safety Report 4838104-1 (Version None)
Quarter: 2005Q4

REPORT INFORMATION
  Report Type: 
  Country: None (occurrence: None)
  Receive Date: 20051121
  Receipt Date: 20051109
  Transmission Date: 20060501
  Serious: Yes (Death)
  Sender: FDA-Public Use
  Company Number: THYM-10778

PATIENT
  Age: 49 Year
  Sex: Male
  Weight: 73 kg

DRUGS (1)
  1. THYMOGLOBULIN [Suspect]
     Indication: IMMUNOSUPPRESSION
     Dosage: 100 MG QD
     Dates: start: 20050817, end: 20050817

REACTIONS (7)
  - ADHESION [None]
  - HEPATIC CIRRHOSIS [None]
  - HEPATITIS C VIRUS [None]
  - INFECTION [None]
  - MULTI-ORGAN FAILURE [None]
  - PERITONITIS [None]
  - PORTAL VEIN THROMBOSIS [None]
